FAERS Safety Report 6494164-6 (Version None)
Quarter: 2009Q4

REPORT INFORMATION
  Report Type: 
  Country: None (occurrence: None)
  Receive Date: 20091214
  Receipt Date: 20090114
  Transmission Date: 20100525
  Serious: No
  Sender: FDA-Public Use
  Company Number: US-BRISTOL-MYERS SQUIBB COMPANY-14470280

PATIENT
  Sex: Female

DRUGS (3)
  1. ABILIFY [Suspect]
     Dates: start: 20081227, end: 20090101
  2. TEGRETOL [Concomitant]
     Dates: end: 20090101
  3. LITHIUM [Concomitant]
     Dates: end: 20090101

REACTIONS (3)
  - LIVER FUNCTION TEST ABNORMAL [None]
  - PYREXIA [None]
  - RASH [None]
